FAERS Safety Report 4465559-7 (Version None)
Quarter: 2004Q4

REPORT INFORMATION
  Report Type: 
  Country: None (occurrence: None)
  Receive Date: 20041004
  Receipt Date: 20040416
  Transmission Date: 20050328
  Serious: Yes (Life-Threatening, Hospitalization)
  Sender: FDA-Public Use
  Company Number: DE-BRISTOL-MYERS SQUIBB COMPANY-12564522

PATIENT
  Age: 43 Year
  Sex: Female
  Weight: 64 kg

DRUGS (3)
  1. REYATAZ [Suspect]
     Indication: HIV INFECTION
     Dosage: THERAPY ONGOING FOR 1 TO 2 MONTHS AT TIME OF EVENT
     Dates: start: 20040115, end: 20040305
  2. COMBIVIR [Concomitant]
     Indication: HIV INFECTION
     Dosage: 150 MG LAMIVUDINE + 300 MG ZIDOVUDINE
     Dates: start: 20010101, end: 20040305
  3. METOPROLOL [Concomitant]
     Indication: HYPERTENSION
     Dates: start: 20010101

REACTIONS (7)
  - ALCOHOL PROBLEM [None]
  - BLOOD BILIRUBIN INCREASED [None]
  - HEPATIC STEATOSIS [None]
  - HEPATOMEGALY [None]
  - JAUNDICE [None]
  - LOSS OF CONSCIOUSNESS [None]
  - TRANSAMINASES INCREASED [None]
